FAERS Safety Report 4676065-9 (Version None)
Quarter: 2005Q2

REPORT INFORMATION
  Report Type: 
  Country: None (occurrence: None)
  Receive Date: 20050527
  Receipt Date: 20050320
  Transmission Date: 20051028
  Serious: Yes (Other)
  Sender: FDA-Public Use
  Company Number: US-GLAXOSMITHKLINE-A0550675A

PATIENT
  Age: 30 Year
  Sex: Female

DRUGS (2)
  1. WELLBUTRIN [Suspect]
     Indication: DEPRESSION
     Dosage: 300MG PER DAY
     Route: 048
     Dates: end: 20050313
  2. NO CONCURRENT MEDICATION [Concomitant]

REACTIONS (3)
  - CONVULSION [None]
  - DIZZINESS [None]
  - HEADACHE [None]
